FAERS Safety Report 21371758 (Version 1)
Quarter: 2022Q3

REPORT INFORMATION
  Report Type: Spontaneous
  Country: US (occurrence: None)
  Receive Date: 20220922
  Receipt Date: 20220922
  Transmission Date: 20221027
  Serious: Yes (Hospitalization)
  Sender: FDA-Public Use
  Company Number: None

PATIENT
  Age: 69 Year
  Sex: Male

DRUGS (13)
  1. AMBRISENTAN [Suspect]
     Active Substance: AMBRISENTAN
     Indication: Pulmonary hypertension
     Dosage: FREQUENCY : DAILY;?
     Route: 048
     Dates: start: 20140228
  2. SILDENAFIL [Concomitant]
     Active Substance: SILDENAFIL
  3. TRAMADOL [Concomitant]
  4. NORCO [Concomitant]
  5. WARFARIN [Concomitant]
     Active Substance: WARFARIN
  6. POTASSIUM CHLORIDE [Concomitant]
  7. TERAZOSIN [Concomitant]
  8. ALPRAZOLAM [Concomitant]
  9. VITAMIN B12 [Concomitant]
     Active Substance: CYANOCOBALAMIN
  10. PRAVASTATIN [Concomitant]
  11. ALENDRONATE [Concomitant]
  12. CALCIUM CITRATE-VIT D3 [Concomitant]
  13. VITAMIN D3 [Concomitant]

REACTIONS (1)
  - Wrong technique in product usage process [None]

NARRATIVE: CASE EVENT DATE: 20220910
